FAERS Safety Report 9805477 (Version 1)
Quarter: 2014Q1

REPORT INFORMATION
  Report Type: Spontaneous
  Country: US (occurrence: None)
  Receive Date: 20140107
  Receipt Date: 20140107
  Transmission Date: 20141002
  Serious: Yes (Other)
  Sender: FDA-Public Use
  Company Number: 2013P1022296

PATIENT
  Age: 71 Year
  Sex: Male

DRUGS (3)
  1. HEPARIN [Suspect]
     Indication: MYOCARDIAL INFARCTION
  2. HEPARIN [Suspect]
     Indication: POST PROCEDURAL COMPLICATION
  3. CLOPIDOGREL [Concomitant]

REACTIONS (3)
  - Vocal cord paralysis [None]
  - Post procedural haematoma [None]
  - Post procedural complication [None]
